FAERS Safety Report 5285488-9 (Version None)
Quarter: 2007Q1

REPORT INFORMATION
  Report Type: 
  Country: None (occurrence: None)
  Receive Date: 20070328
  Receipt Date: 20070321
  Transmission Date: 20070707
  Serious: Yes (Life-Threatening)
  Sender: FDA-Public Use
  Company Number: 2007-156213-NL

PATIENT
  Age: 32 Year
  Sex: Female
  Weight: 60.9 kg

DRUGS (14)
  1. ORG 36286 AND PLACEBO OR PUREGON AND PLACEBO [Suspect]
     Indication: ASSISTED FERTILISATION
     Dosage: 150 UG DAILY SUBCUTANEOUS, ORG 36286/PLACEBO
     Route: 058
     Dates: start: 20070130, end: 20070130
  2. ORG 36286 AND PLACEBO OR PUREGO AND PLACEBO [Suspect]
     Indication: ASSISTED FERTILISATION
     Dosage: 200 IU DAILY SUBCUTANEOUS, RECFSH/PLACEBO
     Route: 058
  3. NATELLE PREFER [Concomitant]
  4. DUET DHA [Concomitant]
  5. RUBELLA VACCINE [Concomitant]
  6. ZYRTEC [Concomitant]
  7. PEPCID [Concomitant]
  8. REGLAN [Concomitant]
  9. ANCEF [Concomitant]
  10. LIDOCAINE [Concomitant]
  11. PROPOFOL [Concomitant]
  12. FENTANYL [Concomitant]
  13. ROBINUL [Concomitant]
  14. METHOTREXATE [Concomitant]

REACTIONS (4)
  - DRUG EXPOSURE DURING PREGNANCY [None]
  - ECTOPIC PREGNANCY [None]
  - UTERINE SPASM [None]
  - VAGINAL HAEMORRHAGE [None]
